FAERS Safety Report 5752563-1 (Version None)
Quarter: 2008Q2

REPORT INFORMATION
  Report Type: 
  Country: None (occurrence: None)
  Receive Date: 20080529
  Receipt Date: 20080527
  Transmission Date: 20081010
  Serious: Yes (Death, Other)
  Sender: FDA-Public Use
  Company Number: PHEH2008US04830

PATIENT
  Sex: Male

DRUGS (2)
  1. AREDIA [Suspect]
     Indication: MULTIPLE MYELOMA
  2. ZOMETA [Suspect]
     Indication: MULTIPLE MYELOMA

REACTIONS (9)
  - ANHEDONIA [None]
  - ANXIETY [None]
  - DEATH [None]
  - DEFORMITY [None]
  - DISABILITY [None]
  - DYSPHAGIA [None]
  - INJURY [None]
  - OSTEONECROSIS [None]
  - PAIN [None]
